FAERS Safety Report 8255673-2 (Version None)
Quarter: 2012Q1

REPORT INFORMATION
  Report Type: 
  Country: None (occurrence: None)
  Receive Date: 20120330
  Receipt Date: 20120320
  Transmission Date: 20120608
  Serious: Yes (Other)
  Sender: FDA-Public Use
  Company Number: 1239323

PATIENT
  Age: 66 Year
  Sex: Male

DRUGS (2)
  1. METHOTREXATE [Suspect]
     Indication: T-CELL LYMPHOMA
  2. CYCLOPHOSPHAMIDE [Concomitant]

REACTIONS (4)
  - EPSTEIN-BARR VIRUS ASSOCIATED LYMPHOMA [None]
  - MYOCARDIAL ISCHAEMIA [None]
  - AORTIC DISORDER [None]
  - ACUTE MYOCARDIAL INFARCTION [None]
